FAERS Safety Report 24305787 (Version 2)
Quarter: 2024Q3

REPORT INFORMATION
  Report Type: Report from Study
  Country: US (occurrence: US)
  Receive Date: 20240911
  Receipt Date: 20240916
  Transmission Date: 20241017
  Serious: Yes (Other)
  Sender: ASTELLAS
  Company Number: US-ASTELLAS-2024-AER-003298

PATIENT
  Sex: Female

DRUGS (1)
  1. FEZOLINETANT [Suspect]
     Active Substance: FEZOLINETANT
     Indication: Hot flush
     Dosage: UNKNOWN ROUTE, DOSE AND FREQUENCY
     Route: 065

REACTIONS (2)
  - Renal impairment [Unknown]
  - Therapeutic response unexpected [Unknown]
